FAERS Safety Report 7364667-0 (Version None)
Quarter: 2011Q1

REPORT INFORMATION
  Report Type: 
  Country: None (occurrence: None)
  Receive Date: 20110321
  Receipt Date: 20110221
  Transmission Date: 20110831
  Serious: No
  Sender: FDA-Public Use
  Company Number: US-BAYER-2011-017569

PATIENT
  Sex: Female
  Weight: 84 kg

DRUGS (1)
  1. ALEVE (CAPLET) [Suspect]
     Indication: BACK PAIN
     Dosage: 1 DF, QD
     Route: 048
     Dates: start: 20110219, end: 20110220

REACTIONS (2)
  - BLOOD GLUCOSE INCREASED [None]
  - ENURESIS [None]
